FAERS Safety Report 9019480 (Version 1)
Quarter: 2013Q1

REPORT INFORMATION
  Report Type: Spontaneous
  Country: BR (occurrence: BR)
  Receive Date: 20130118
  Receipt Date: 20130118
  Transmission Date: 20140127
  Serious: Yes (Hospitalization)
  Sender: FDA-Public Use
  Company Number: BR-PFIZER INC-2013019563

PATIENT
  Age: 66 Year
  Sex: Male

DRUGS (3)
  1. CELEBRA [Suspect]
     Dosage: 200 MG, (ONE CAPSULE DAILY)
     Route: 048
     Dates: start: 20120217
  2. ASPIRINA [Concomitant]
     Dosage: ONE (UNSPECIFIED FORMULATION), DAILY
  3. SELOKEN [Concomitant]
     Dosage: TWO (UNSPECIFIED FORMULATION), DAILY

REACTIONS (1)
  - Cardiac disorder [Unknown]
